FAERS Safety Report 15296437 (Version 1)
Quarter: 2018Q3

REPORT INFORMATION
  Report Type: Spontaneous
  Country: US (occurrence: US)
  Receive Date: 20180820
  Receipt Date: 20180820
  Transmission Date: 20181010
  Serious: Yes (Hospitalization)
  Sender: FDA-Public Use
  Company Number: US-ASTELLAS-2018US026537

PATIENT
  Age: 67 Year
  Sex: Male

DRUGS (2)
  1. AMBISOME [Suspect]
     Active Substance: AMPHOTERICIN B
     Indication: LEISHMANIASIS
     Dosage: 3 MG/KG, UNKNOWN FREQ. FOR 8 DOSES OVER 15 DAYS
     Route: 065
     Dates: start: 201805
  2. AMBISOME [Suspect]
     Active Substance: AMPHOTERICIN B
     Route: 065

REACTIONS (6)
  - Blood creatinine increased [Unknown]
  - Diarrhoea [Unknown]
  - Head titubation [Unknown]
  - Pyrexia [Unknown]
  - Headache [Unknown]
  - Tremor [Unknown]
